FAERS Safety Report 4693498-5 (Version None)
Quarter: 2005Q2

REPORT INFORMATION
  Report Type: 
  Country: None (occurrence: None)
  Receive Date: 20050615
  Receipt Date: 20050526
  Transmission Date: 20051028
  Serious: Yes (Hospitalization)
  Sender: FDA-Public Use
  Company Number: USA050598265

PATIENT
  Age: 78 Year
  Sex: Male

DRUGS (8)
  1. ALIMTA [Suspect]
     Dosage: 900 MG
  2. VITAMIN B-12 [Concomitant]
  3. FOLIC ACID [Concomitant]
  4. CORTICOSTEROID [Concomitant]
  5. ZOMETA [Concomitant]
  6. ALDACTONE [Concomitant]
  7. HYDROCHLOROTHIAZIDE [Concomitant]
  8. NIFEDIPINE [Concomitant]

REACTIONS (5)
  - BLOOD CREATININE INCREASED [None]
  - DEHYDRATION [None]
  - GASTROINTESTINAL INFECTION [None]
  - RENAL DISORDER [None]
  - VIRAL INFECTION [None]
